FAERS Safety Report 5979488-0 (Version None)
Quarter: 2008Q4

REPORT INFORMATION
  Report Type: 
  Country: None (occurrence: None)
  Receive Date: 20081126
  Receipt Date: 20081113
  Transmission Date: 20090506
  Serious: Yes (Death, Hospitalization)
  Sender: FDA-Public Use
  Company Number: 2008000427

PATIENT
  Age: 80 Year
  Sex: Male

DRUGS (7)
  1. ERLOTINIB (ERLOTINIB HCL) (TABLET) (ERLOTINIB HCL) [Suspect]
     Indication: LUNG ADENOCARCINOMA
     Dosage: (150 MG,QD), ORAL
     Route: 048
     Dates: start: 20080205, end: 20080213
  2. LOXONIN (LOXOPROFEN SODIUM) [Suspect]
     Dosage: (180 MG, QD)
     Dates: end: 20080216
  3. VOLTAREN [Suspect]
     Dosage: (50 MG, QD), RECTAL
     Route: 054
     Dates: start: 20080131, end: 20080310
  4. MUCOSTA (REBAMIPIDE) [Concomitant]
  5. GABAPEN [Concomitant]
  6. LOPERAMIDE HCL [Concomitant]
  7. LANSOPRAZOLE [Concomitant]

REACTIONS (10)
  - CEREBRAL INFARCTION [None]
  - CEREBRAL ISCHAEMIA [None]
  - DEHYDRATION [None]
  - DELIRIUM [None]
  - DIARRHOEA [None]
  - DISSEMINATED INTRAVASCULAR COAGULATION [None]
  - LUNG ADENOCARCINOMA [None]
  - MALIGNANT NEOPLASM PROGRESSION [None]
  - METASTASES TO BONE [None]
  - NEOPLASM MALIGNANT [None]
